APPROVED DRUG PRODUCT: RIBAVIRIN
Active Ingredient: RIBAVIRIN
Strength: 200MG
Dosage Form/Route: TABLET;ORAL
Application: A079111 | Product #001 | TE Code: AB
Applicant: AUROBINDO PHARMA LTD
Approved: Sep 17, 2009 | RLD: No | RS: No | Type: RX